FAERS Safety Report 16861255 (Version 2)
Quarter: 2020Q1

REPORT INFORMATION
  Report Type: Report from Study
  Country: None (occurrence: US)
  Receive Date: 20190927
  Receipt Date: 20200110
  Transmission Date: 20200409
  Serious: No
  Sender: FDA-Public Use
  Company Number: US-ABBVIE-19K-163-2939963-00

PATIENT
  Sex: Male
  Weight: 84.44 kg

DRUGS (1)
  1. HUMIRA [Suspect]
     Active Substance: ADALIMUMAB
     Indication: PSORIASIS
     Route: 058
     Dates: start: 201906

REACTIONS (5)
  - Abdominal distension [Recovering/Resolving]
  - Pyrexia [Unknown]
  - Abdominal pain upper [Unknown]
  - Fatigue [Unknown]
  - Pain [Recovering/Resolving]
